FAERS Safety Report 10334920 (Version 3)
Quarter: 2014Q3

REPORT INFORMATION
  Report Type: Spontaneous
  Country: US (occurrence: US)
  Receive Date: 20140723
  Receipt Date: 20140808
  Transmission Date: 20150326
  Serious: Yes (Other)
  Sender: FDA-Public Use
  Company Number: US-JNJFOC-20140706125

PATIENT

DRUGS (2)
  1. METHYLPREDNISOLONE [Suspect]
     Active Substance: METHYLPREDNISOLONE
     Indication: ACUTE GRAFT VERSUS HOST DISEASE
     Route: 065
  2. INFLIXIMAB, RECOMBINANT [Suspect]
     Active Substance: INFLIXIMAB
     Indication: ACUTE GRAFT VERSUS HOST DISEASE
     Dosage: FOR 4 WEEKS
     Route: 042

REACTIONS (9)
  - Mycobacterial infection [Unknown]
  - Bacterial infection [Unknown]
  - Viral infection [Unknown]
  - Aspergillus infection [Unknown]
  - Candida infection [Unknown]
  - Drug ineffective [Unknown]
  - Off label use [Unknown]
  - Cytomegalovirus infection [Unknown]
  - Fungal infection [Unknown]
